FAERS Safety Report 25198896 (Version 4)
Quarter: 2025Q2

REPORT INFORMATION
  Report Type: Report from Study
  Country: CH (occurrence: CH)
  Receive Date: 20250415
  Receipt Date: 20250609
  Transmission Date: 20250717
  Serious: Yes (Death, Hospitalization, Other)
  Sender: TAKEDA
  Company Number: CH-TAKEDA-2025TUS036496

PATIENT
  Age: 87 Year
  Sex: Male

DRUGS (3)
  1. HUMAN IMMUNOGLOBULIN G [Suspect]
     Active Substance: HUMAN IMMUNOGLOBULIN G
     Indication: Lymphoma
     Dosage: 6 GRAM, 1/WEEK
     Dates: start: 20241015
  2. HUMAN IMMUNOGLOBULIN G [Suspect]
     Active Substance: HUMAN IMMUNOGLOBULIN G
     Indication: Secondary immunodeficiency
  3. HUMAN IMMUNOGLOBULIN G [Suspect]
     Active Substance: HUMAN IMMUNOGLOBULIN G

REACTIONS (2)
  - Death [Fatal]
  - Lymphoma [Not Recovered/Not Resolved]

NARRATIVE: CASE EVENT DATE: 20250506
